FAERS Safety Report 4716664-9 (Version None)
Quarter: 2005Q3

REPORT INFORMATION
  Report Type: 
  Country: None (occurrence: None)
  Receive Date: 20050718
  Receipt Date: 20050706
  Transmission Date: 20060218
  Serious: Yes (Death, Hospitalization)
  Sender: FDA-Public Use
  Company Number: GXKR2005FI01309

PATIENT
  Age: 76 Year
  Sex: Male

DRUGS (10)
  1. ATORVASTATIN (NGX)(ATORVASTAIN) UNKNOWN [Suspect]
     Indication: LOW DENSITY LIPOPROTEIN INCREASED
     Dosage: 40 MG, QD
  2. FLUCONAZOLE [Suspect]
     Indication: INFECTION
     Dosage: 150 MG, QD
  3. BISOPROLOL [Concomitant]
  4. DIGOXIN [Concomitant]
  5. WARFARIN SODIUM [Concomitant]
  6. DOXYCYCLINE [Concomitant]
  7. FUSIDIC ACID [Concomitant]
  8. PREDNISOLONE [Concomitant]
  9. ESOMEPRAZOLE [Concomitant]
  10. PRAVASTATIN [Concomitant]

REACTIONS (12)
  - CARDIOMEGALY [None]
  - DRUG INTERACTION [None]
  - DYSPNOEA [None]
  - FATIGUE [None]
  - GENERAL PHYSICAL HEALTH DETERIORATION [None]
  - HAEMODIALYSIS [None]
  - HYPOTENSION [None]
  - INTERNATIONAL NORMALISED RATIO INCREASED [None]
  - MULTI-ORGAN FAILURE [None]
  - PULMONARY CONGESTION [None]
  - RENAL FAILURE [None]
  - RHABDOMYOLYSIS [None]
